FAERS Safety Report 14614417 (Version 1)
Quarter: 2018Q1

REPORT INFORMATION
  Report Type: Spontaneous
  Country: US (occurrence: US)
  Receive Date: 20180308
  Receipt Date: 20180308
  Transmission Date: 20180509
  Serious: Yes (Life-Threatening, Hospitalization)
  Sender: FDA-Public Use
  Company Number: PHHY2018US031251

PATIENT
  Age: 59 Year
  Sex: Male

DRUGS (5)
  1. METHYLPREDNISOLONE. [Suspect]
     Active Substance: METHYLPREDNISOLONE
     Dosage: 125 MG, UNK
     Route: 042
  2. PREDNISONE. [Suspect]
     Active Substance: PREDNISONE
     Indication: SARCOIDOSIS
     Dosage: 30 MG, QD
     Route: 048
  3. PREDNISONE. [Suspect]
     Active Substance: PREDNISONE
     Dosage: 60 MG, QD
     Route: 065
  4. METHYLPREDNISOLONE. [Suspect]
     Active Substance: METHYLPREDNISOLONE
     Indication: PNEUMONIA
     Dosage: FROM DAY-2
     Route: 048
  5. METHYLPREDNISOLONE. [Suspect]
     Active Substance: METHYLPREDNISOLONE
     Dosage: 40 MG, Q8H
     Route: 042

REACTIONS (20)
  - Cardiac arrest [Unknown]
  - Pneumonia aspiration [Recovered/Resolved]
  - Pyrexia [Recovered/Resolved]
  - Rales [Recovered/Resolved]
  - Night sweats [Recovered/Resolved]
  - Hypoxia [Recovered/Resolved]
  - Treatment failure [Unknown]
  - Acute kidney injury [Unknown]
  - Candida infection [Recovered/Resolved]
  - Granuloma [Recovered/Resolved]
  - Ventricular tachycardia [Unknown]
  - Asthenia [Recovered/Resolved]
  - Vomiting [Recovered/Resolved]
  - Respiratory acidosis [Recovered/Resolved]
  - Renal impairment [Unknown]
  - Dyspnoea [Recovered/Resolved]
  - Candida pneumonia [Recovered/Resolved]
  - Cough [Recovered/Resolved]
  - Lymphadenopathy mediastinal [Recovered/Resolved]
  - Pericardial effusion [Recovered/Resolved]
